FAERS Safety Report 11942274 (Version 3)
Quarter: 2016Q2

REPORT INFORMATION
  Report Type: Report from Study
  Country: US (occurrence: US)
  Receive Date: 20160125
  Receipt Date: 20160408
  Transmission Date: 20160815
  Serious: Yes (Other)
  Sender: FDA-Public Use
  Company Number: US-AMGEN-USASL2016005659

PATIENT
  Age: 78 Year
  Sex: Female

DRUGS (2)
  1. REPATHA [Suspect]
     Active Substance: EVOLOCUMAB
     Indication: HYPERCHOLESTEROLAEMIA
     Dosage: 140 MG, 2 TIMES A MONTH
     Route: 065
     Dates: start: 20151115
  2. TETRACYCLINE                       /00001702/ [Suspect]
     Active Substance: TETRACYCLINE
     Indication: DRY EYE
     Route: 065

REACTIONS (15)
  - Skin ulcer [Unknown]
  - Erythema [Not Recovered/Not Resolved]
  - Blood cholesterol increased [Unknown]
  - Dry eye [Unknown]
  - Pruritus [Unknown]
  - Injection site bruising [Unknown]
  - Pain of skin [Unknown]
  - Vomiting [Unknown]
  - Abdominal discomfort [Unknown]
  - Injection site swelling [Unknown]
  - Vision blurred [Unknown]
  - Injection site pruritus [Unknown]
  - Scab [Not Recovered/Not Resolved]
  - Scar [Not Recovered/Not Resolved]
  - Skin ulcer haemorrhage [Not Recovered/Not Resolved]
